FAERS Safety Report 6123566-2 (Version None)
Quarter: 2009Q1

REPORT INFORMATION
  Report Type: 
  Country: None (occurrence: None)
  Receive Date: 20090318
  Receipt Date: 20090318
  Transmission Date: 20090719
  Serious: Yes (Other)
  Sender: FDA-Public Use
  Company Number: None

PATIENT
  Sex: Female
  Weight: 46.7205 kg

DRUGS (8)
  1. ZOLPIDEM [Suspect]
     Indication: INSOMNIA
     Dosage: 10MG QHS PO
     Route: 048
     Dates: start: 20080101
  2. CALCIUM [Concomitant]
  3. VITAMIN [Concomitant]
  4. DEPAKOTE [Concomitant]
  5. ESTRING [Concomitant]
  6. MOBIC [Concomitant]
  7. SKELIXIR [Concomitant]
  8. LIMBREL [Concomitant]

REACTIONS (3)
  - DRUG INEFFECTIVE [None]
  - HANGOVER [None]
  - THERAPEUTIC RESPONSE UNEXPECTED WITH DRUG SUBSTITUTION [None]
